FAERS Safety Report 5923742-5 (Version None)
Quarter: 2008Q3

REPORT INFORMATION
  Report Type: 
  Country: None (occurrence: None)
  Receive Date: 20080909
  Receipt Date: 20080707
  Transmission Date: 20090109
  Serious: Yes (Death)
  Sender: FDA-Public Use
  Company Number: 163-20785-07111477

PATIENT
  Age: 60 Year
  Sex: Female

DRUGS (2)
  1. THALOMID (THALIDOMIDE) (CAPSULES) [Suspect]
     Indication: MULTIPLE MYELOMA
     Dosage: 200 MG, ORAL : 100 MG, ORAL
     Route: 048
     Dates: start: 20070726, end: 20070801
  2. THALOMID (THALIDOMIDE) (CAPSULES) [Suspect]
     Indication: MULTIPLE MYELOMA
     Dosage: 200 MG, ORAL : 100 MG, ORAL
     Route: 048
     Dates: start: 20070824, end: 20071101

REACTIONS (2)
  - CARDIAC FAILURE CONGESTIVE [None]
  - MYOCARDIAL INFARCTION [None]
